FAERS Safety Report 17259625 (Version 4)
Quarter: 2020Q1

REPORT INFORMATION
  Report Type: Spontaneous
  Country: JP (occurrence: JP)
  Receive Date: 20200110
  Receipt Date: 20200214
  Transmission Date: 20200409
  Serious: Yes (Death, Other)
  Sender: FDA-Public Use
  Company Number: JP-JAZZ-2020-JP-000302

PATIENT
  Age: 65 Year
  Sex: Male

DRUGS (1)
  1. DEFITELIO [Suspect]
     Active Substance: DEFIBROTIDE SODIUM
     Indication: VENOOCCLUSIVE LIVER DISEASE
     Dosage: 25 MG/KG/24 HOURS
     Route: 042
     Dates: start: 20191227, end: 20191230

REACTIONS (2)
  - Venoocclusive liver disease [Fatal]
  - Organ failure [Fatal]
